FAERS Safety Report 10926287 (Version 1)
Quarter: 2015Q1

REPORT INFORMATION
  Report Type: Spontaneous
  Country: US (occurrence: None)
  Receive Date: 20150316
  Receipt Date: 20150316
  Transmission Date: 20150721
  Serious: No
  Sender: FDA-Public Use
  Company Number: None

PATIENT
  Age: 55 Year
  Sex: Female
  Weight: 122.47 kg

DRUGS (1)
  1. LEVOTHYROXINE SODIUM 125MCG MYLAN [Suspect]
     Active Substance: LEVOTHYROXINE SODIUM
     Indication: HYPOTHYROIDISM
     Dosage: QAM, ONCE
     Route: 048
     Dates: start: 2013

REACTIONS (2)
  - Rash [None]
  - Swollen tongue [None]

NARRATIVE: CASE EVENT DATE: 20130410
